FAERS Safety Report 20316245 (Version 2)
Quarter: 2022Q1

REPORT INFORMATION
  Report Type: Report from Study
  Country: US (occurrence: US)
  Receive Date: 20220110
  Receipt Date: 20220221
  Transmission Date: 20220423
  Serious: Yes (Other)
  Sender: FDA-Public Use
  Company Number: US-JNJFOC-20220107119

PATIENT
  Age: 24 Year
  Sex: Female
  Weight: 88.984 kg

DRUGS (6)
  1. SPRAVATO [Suspect]
     Active Substance: ESKETAMINE
     Indication: Depression
     Dosage: 3 DOSES
     Dates: start: 20211216, end: 20211228
  2. SPRAVATO [Suspect]
     Active Substance: ESKETAMINE
     Indication: Major depression
     Dates: start: 20220104, end: 20220104
  3. SPRAVATO [Suspect]
     Active Substance: ESKETAMINE
     Dates: start: 20220106, end: 20220106
  4. SPRAVATO [Suspect]
     Active Substance: ESKETAMINE
     Dates: start: 20220111, end: 20220111
  5. RITALIN [Concomitant]
     Active Substance: METHYLPHENIDATE HYDROCHLORIDE
     Dates: start: 20220103
  6. CLOMIPRAMINE [Concomitant]
     Active Substance: CLOMIPRAMINE
     Dosage: NIGHTLY
     Dates: start: 20220103

REACTIONS (4)
  - Depressed level of consciousness [Recovered/Resolved]
  - Dissociation [Recovered/Resolved]
  - Hyperkinesia [Recovered/Resolved]
  - Dyskinesia [Recovered/Resolved]

NARRATIVE: CASE EVENT DATE: 20220104
